FAERS Safety Report 15691064 (Version 1)
Quarter: 2018Q4

REPORT INFORMATION
  Report Type: Spontaneous
  Country: US (occurrence: US)
  Receive Date: 20181205
  Receipt Date: 20181205
  Transmission Date: 20190205
  Serious: No
  Sender: FDA-Public Use
  Company Number: US-BAYER-2018-222874

PATIENT
  Age: 89 Year
  Sex: Male
  Weight: 76 kg

DRUGS (1)
  1. MIRALAX [Suspect]
     Active Substance: POLYETHYLENE GLYCOL 3350
     Indication: CONSTIPATION
     Dosage: UNK UNK, 1 AND 3/4 TEASPOON QD
     Route: 048

REACTIONS (5)
  - Diarrhoea [Unknown]
  - Wrong technique in product usage process [Unknown]
  - Incorrect dosage administered [Unknown]
  - Product use in unapproved indication [Unknown]
  - Product use issue [Unknown]
